FAERS Safety Report 4606353-3 (Version None)
Quarter: 2005Q2

REPORT INFORMATION
  Report Type: 
  Country: None (occurrence: None)
  Receive Date: 20050223
  Receipt Date: 20041129
  Transmission Date: 20051028
  Serious: Yes (Hospitalization)
  Sender: FDA-Public Use
  Company Number: WAES 0411USA04109

PATIENT
  Sex: Female

DRUGS (1)
  1. ZOCOR [Suspect]
     Dosage: PO
     Route: 048
     Dates: end: 19990101

REACTIONS (1)
  - MUSCLE DISORDER [None]
